FAERS Safety Report 9829731 (Version 3)
Quarter: 2016Q3

REPORT INFORMATION
  Report Type: Spontaneous
  Country: IR (occurrence: IR)
  Receive Date: 20140120
  Receipt Date: 20160810
  Transmission Date: 20161109
  Serious: Yes (Death, Other)
  Sender: FDA-Public Use
  Company Number: IR-BRISTOL-MYERS SQUIBB COMPANY-20029310

PATIENT

DRUGS (1)
  1. METFORMIN HYDROCHLORIDE. [Suspect]
     Active Substance: METFORMIN HYDROCHLORIDE
     Indication: TYPE 2 DIABETES MELLITUS
     Dosage: RANGE; 750MG TO 100GRAMS WITH A MEAN OF 14-18G
     Route: 065

REACTIONS (8)
  - Depressed level of consciousness [Unknown]
  - Lactic acidosis [Unknown]
  - Toxicity to various agents [Fatal]
  - Acute kidney injury [Unknown]
  - Loss of consciousness [Unknown]
  - Overdose [Unknown]
  - Hypoglycaemia [Unknown]
  - Abdominal pain upper [Unknown]
